FAERS Safety Report 9474219 (Version 4)
Quarter: 2014Q1

REPORT INFORMATION
  Report Type: Spontaneous
  Country: JP (occurrence: JP)
  Receive Date: 20130823
  Receipt Date: 20140117
  Transmission Date: 20141002
  Serious: Yes (Other)
  Sender: FDA-Public Use
  Company Number: JP-B.I. PHARMACEUTICALS,INC./RIDGEFIELD-2013-BI-25964NB

PATIENT
  Age: 73 Year
  Sex: Male
  Weight: 58 kg

DRUGS (9)
  1. TRAZENTA [Suspect]
     Indication: TYPE 2 DIABETES MELLITUS
     Dosage: 5 MG
     Route: 048
     Dates: start: 20130625, end: 20130820
  2. RENIVACE / ENALAPRIL MALEATE [Concomitant]
     Indication: HYPERTENSION
     Dosage: 5 MG
     Route: 065
  3. AMARYL / GLIMEPIRIDE [Concomitant]
     Indication: TYPE 2 DIABETES MELLITUS
     Dosage: 2 MG
     Route: 065
     Dates: end: 20131210
  4. LIVALO / PITAVASTATIN CALCIUM [Concomitant]
     Indication: DYSLIPIDAEMIA
     Dosage: 1 MG
     Route: 065
  5. NORVASC / AMLODIPINE BESILATE [Concomitant]
     Indication: HYPERTENSION
     Dosage: 5 MG
     Route: 065
  6. PANALDINE / TICLOPIDINE HYDROCHLORIDE [Concomitant]
     Indication: DIABETIC NEPHROPATHY
     Route: 065
  7. ZYLORIC / ALLOPURINOL [Concomitant]
     Indication: HYPERURICAEMIA
     Dosage: 100 MG
     Route: 065
  8. ARGAMATE / CALCIUM POLYSTYRENE SULFONATE [Concomitant]
     Indication: HYPERKALAEMIA
     Dosage: 100 G
     Route: 065
     Dates: start: 20130820
  9. MICARDIS / TELMISARTAN [Concomitant]
     Indication: HYPERTENSION
     Route: 065

REACTIONS (1)
  - Renal failure [Not Recovered/Not Resolved]
